FAERS Safety Report 7166804-X (Version None)
Quarter: 2010Q4

REPORT INFORMATION
  Report Type: 
  Country: None (occurrence: None)
  Receive Date: 20101216
  Receipt Date: 20101208
  Transmission Date: 20110411
  Serious: Yes (Death, Hospitalization)
  Sender: FDA-Public Use
  Company Number: US-ROCHE-748196

PATIENT
  Sex: Male
  Weight: 63.5 kg

DRUGS (7)
  1. BEVACIZUMAB [Suspect]
     Route: 042
     Dates: start: 20080908, end: 20081122
  2. CETUXIMAB [Suspect]
     Route: 042
     Dates: start: 20080825, end: 20081103
  3. PACLITAXEL [Suspect]
     Route: 042
     Dates: start: 20080825, end: 20080915
  4. CARBOPLATIN [Suspect]
     Route: 042
     Dates: start: 20080825, end: 20080915
  5. TYLOX [Concomitant]
     Dates: start: 20080825
  6. MINOCYCLINE HCL [Concomitant]
     Dates: start: 20080904
  7. NEXIUM [Concomitant]

REACTIONS (3)
  - DISEASE PROGRESSION [None]
  - MALIGNANT NEOPLASM PROGRESSION [None]
  - METASTASES TO MENINGES [None]
